FAERS Safety Report 7945408-2 (Version None)
Quarter: 2011Q4

REPORT INFORMATION
  Report Type: 
  Country: None (occurrence: None)
  Receive Date: 20111129
  Receipt Date: 20111117
  Transmission Date: 20120403
  Serious: Yes (Other)
  Sender: FDA-Public Use
  Company Number: US-SANOFI-AVENTIS-2011SA061934

PATIENT
  Age: 66 Year
  Sex: Female
  Weight: 42 kg

DRUGS (14)
  1. PLAVIX [Suspect]
     Route: 048
     Dates: start: 20040601
  2. PLAVIX [Suspect]
     Route: 048
     Dates: start: 20110923
  3. DIPHENHYDRAMINE HCL [Concomitant]
     Dates: start: 19900101
  4. ASCORBIC ACID [Concomitant]
  5. PLAVIX [Suspect]
     Route: 048
     Dates: start: 20040601
  6. PLAVIX [Suspect]
     Route: 048
  7. PLAVIX [Suspect]
     Route: 048
     Dates: start: 20110923
  8. BRETHINE [Concomitant]
     Indication: ASTHMA
     Dates: start: 19960101
  9. DETROL [Suspect]
     Dates: start: 20090201
  10. PLAVIX [Suspect]
     Route: 048
     Dates: end: 20110920
  11. PLAVIX [Suspect]
     Route: 048
     Dates: end: 20110920
  12. PLAVIX [Suspect]
     Route: 048
  13. AMLODIPINE BESYLATE [Suspect]
     Dates: start: 20050501
  14. FELDENE [Concomitant]

REACTIONS (24)
  - ROAD TRAFFIC ACCIDENT [None]
  - HYPERTONIC BLADDER [None]
  - MOUTH BREATHING [None]
  - DRY MOUTH [None]
  - RENAL PAIN [None]
  - ASTHMA [None]
  - URINARY INCONTINENCE [None]
  - POOR PERIPHERAL CIRCULATION [None]
  - STOMATITIS [None]
  - IRON DEFICIENCY ANAEMIA [None]
  - INTERVERTEBRAL DISC PROTRUSION [None]
  - MULTIPLE ALLERGIES [None]
  - CONTUSION [None]
  - WEIGHT INCREASED [None]
  - ERYTHEMA [None]
  - HYPOAESTHESIA [None]
  - NAUSEA [None]
  - BREAST CANCER [None]
  - PRURITUS [None]
  - DEHYDRATION [None]
  - DYSGEUSIA [None]
  - VISUAL IMPAIRMENT [None]
  - OEDEMA PERIPHERAL [None]
  - DYSPEPSIA [None]
